FAERS Safety Report 25612517 (Version 1)
Quarter: 2025Q3

REPORT INFORMATION
  Report Type: Spontaneous
  Country: US (occurrence: None)
  Receive Date: 20250726
  Receipt Date: 20250726
  Transmission Date: 20251021
  Serious: Yes (Death)
  Sender: FDA-CTU
  Company Number: None

PATIENT
  Age: 75 Year
  Sex: Male
  Weight: 119.8 kg

DRUGS (2)
  1. LEUPROLIDE ACETATE [Suspect]
     Active Substance: LEUPROLIDE ACETATE
     Dates: end: 20250514
  2. ENZALUTAMIDE [Suspect]
     Active Substance: ENZALUTAMIDE

REACTIONS (2)
  - Pulmonary embolism [None]
  - Therapy cessation [None]

NARRATIVE: CASE EVENT DATE: 20250702
